FAERS Safety Report 24553702 (Version 1)
Quarter: 2024Q4

REPORT INFORMATION
  Report Type: Spontaneous
  Country: US (occurrence: US)
  Receive Date: 20241028
  Receipt Date: 20241028
  Transmission Date: 20250115
  Serious: No
  Sender: ROCHE
  Company Number: US-ROCHE-3542295

PATIENT
  Age: 12 Year
  Sex: Male

DRUGS (1)
  1. NUTROPIN AQ [Suspect]
     Active Substance: SOMATROPIN
     Indication: Hypopituitarism
     Dosage: NUTROPIN AQ NUSPIN 20MG/2ML? FREQUENCY TEXT:6 DAYS/WEEKS
     Route: 058

REACTIONS (3)
  - Drug delivery system malfunction [Unknown]
  - No adverse event [Unknown]
  - Intentional product misuse [Unknown]
